FAERS Safety Report 22321389 (Version 16)
Quarter: 2024Q4

REPORT INFORMATION
  Report Type: Spontaneous
  Country: US (occurrence: US)
  Receive Date: 20230515
  Receipt Date: 20241011
  Transmission Date: 20250115
  Serious: No
  Sender: VERTEX
  Company Number: US-VERTEX PHARMACEUTICALS-2023-006800

PATIENT

DRUGS (10)
  1. TRIKAFTA [Suspect]
     Active Substance: ELEXACAFTOR\IVACAFTOR\TEZACAFTOR
     Indication: Cystic fibrosis
     Dosage: FULL DOSE
     Route: 048
     Dates: start: 2022
  2. TRIKAFTA [Suspect]
     Active Substance: ELEXACAFTOR\IVACAFTOR\TEZACAFTOR
     Dosage: SWAPPING THE MORNING AND EVENING DOSE
     Route: 048
  3. TRIKAFTA [Suspect]
     Active Substance: ELEXACAFTOR\IVACAFTOR\TEZACAFTOR
     Dosage: STOPPED BLUE TABS, ORANGE EVERYDAY (NO BLUES)
     Route: 048
  4. TRIKAFTA [Suspect]
     Active Substance: ELEXACAFTOR\IVACAFTOR\TEZACAFTOR
     Dosage: LOWERED DOSE
     Route: 048
     Dates: start: 202307
  5. TRIKAFTA [Suspect]
     Active Substance: ELEXACAFTOR\IVACAFTOR\TEZACAFTOR
     Dosage: MODIFIED DOSE
     Route: 048
  6. TRIKAFTA [Suspect]
     Active Substance: ELEXACAFTOR\IVACAFTOR\TEZACAFTOR
     Dosage: ONLY TAKE ORANGE ONES MID AFTERNOON
     Route: 048
  7. METFORMIN [Suspect]
     Active Substance: METFORMIN HYDROCHLORIDE
     Indication: Product used for unknown indication
     Dosage: UNK
     Route: 065
  8. PANCREAZE [Concomitant]
     Active Substance: PANCRELIPASE AMYLASE\PANCRELIPASE LIPASE\PANCRELIPASE PROTEASE
     Dosage: 21 K
  9. MIRALAX [Concomitant]
     Active Substance: POLYETHYLENE GLYCOL 3350
  10. PERTZYE [Concomitant]
     Active Substance: PANCRELIPASE AMYLASE\PANCRELIPASE LIPASE\PANCRELIPASE PROTEASE

REACTIONS (24)
  - Gastrointestinal motility disorder [Unknown]
  - Affect lability [Recovering/Resolving]
  - Disturbance in attention [Recovering/Resolving]
  - Anxiety [Recovering/Resolving]
  - Negative thoughts [Recovering/Resolving]
  - Memory impairment [Recovering/Resolving]
  - Gastrointestinal disorder [Unknown]
  - Brain fog [Recovering/Resolving]
  - Mood swings [Recovering/Resolving]
  - Abnormal dreams [Recovering/Resolving]
  - Fat intolerance [Unknown]
  - Dyspepsia [Unknown]
  - Night sweats [Recovering/Resolving]
  - Stress [Unknown]
  - Vomiting [Not Recovered/Not Resolved]
  - Loss of personal independence in daily activities [Recovering/Resolving]
  - Frustration tolerance decreased [Unknown]
  - Mental disorder [Recovering/Resolving]
  - Constipation [Unknown]
  - Pancreatic failure [Not Recovered/Not Resolved]
  - Cognitive disorder [Not Recovered/Not Resolved]
  - Lactose intolerance [Not Recovered/Not Resolved]
  - Nightmare [Recovering/Resolving]
  - Secretion discharge [Not Recovered/Not Resolved]
